FAERS Safety Report 9951030 (Version 1)
Quarter: 2014Q1

REPORT INFORMATION
  Report Type: Spontaneous
  Country: US (occurrence: US)
  Receive Date: 20140304
  Receipt Date: 20140304
  Transmission Date: 20141002
  Serious: No
  Sender: FDA-Public Use
  Company Number: US-PFIZER INC-2014057355

PATIENT
  Sex: 0

DRUGS (4)
  1. ADVIL [Suspect]
     Indication: TENSION HEADACHE
     Dosage: UNK
  2. ADVIL [Suspect]
     Indication: SINUS HEADACHE
  3. ADVIL [Suspect]
     Indication: HEADACHE
  4. ADVIL [Suspect]
     Indication: MYALGIA

REACTIONS (1)
  - Drug ineffective [Unknown]
